FAERS Safety Report 17159896 (Version 4)
Quarter: 2020Q3

REPORT INFORMATION
  Report Type: Spontaneous
  Country: US (occurrence: US)
  Receive Date: 20191216
  Receipt Date: 20200709
  Transmission Date: 20201102
  Serious: Yes (Other)
  Sender: FDA-Public Use
  Company Number: US-SA-2019SA344838

PATIENT

DRUGS (4)
  1. DOCETAXEL. [Suspect]
     Active Substance: DOCETAXEL
     Indication: BREAST CANCER FEMALE
     Dosage: 75 MG/M2, Q3W
     Route: 065
     Dates: start: 20160117, end: 20160117
  2. DOCETAXEL. [Suspect]
     Active Substance: DOCETAXEL
     Dosage: 75 MG/M2, Q3W
     Route: 065
     Dates: start: 20160310, end: 20160310
  3. CYTOXAN [Concomitant]
     Active Substance: CYCLOPHOSPHAMIDE
     Indication: BREAST CANCER FEMALE
     Dosage: UNK
     Route: 065
     Dates: start: 20160117, end: 20160310
  4. NEOSAR [Concomitant]
     Active Substance: CYCLOPHOSPHAMIDE
     Indication: BREAST CANCER FEMALE
     Dosage: UNK
     Route: 065

REACTIONS (6)
  - Emotional distress [Unknown]
  - Psychological trauma [Unknown]
  - Pain [Unknown]
  - Impaired quality of life [Unknown]
  - Alopecia [Recovering/Resolving]
  - Anxiety [Unknown]

NARRATIVE: CASE EVENT DATE: 20160210
